FAERS Safety Report 4993638-4 (Version None)
Quarter: 2006Q2

REPORT INFORMATION
  Report Type: 
  Country: None (occurrence: None)
  Receive Date: 20060505
  Receipt Date: 20060117
  Transmission Date: 20061013
  Serious: Yes (Hospitalization, Other)
  Sender: FDA-Public Use
  Company Number: US-MERCK-0601USA01976

PATIENT
  Age: 48 Year
  Sex: Male
  Weight: 93 kg

DRUGS (6)
  1. VIOXX [Suspect]
     Indication: SHOULDER PAIN
     Route: 048
     Dates: start: 19990916, end: 20020520
  2. PRINIVIL [Concomitant]
     Indication: HYPERTENSION
     Route: 065
     Dates: start: 19990101
  3. ATENOLOL [Concomitant]
     Indication: HYPERTENSION
     Route: 065
  4. SPIRONOLACTONE [Concomitant]
     Route: 065
  5. VIAGRA [Concomitant]
     Route: 065
  6. LASIX [Concomitant]
     Route: 065
     Dates: start: 19990115, end: 20030606

REACTIONS (4)
  - CARDIOMYOPATHY ALCOHOLIC [None]
  - CARDIOVASCULAR DISORDER [None]
  - FLUID RETENTION [None]
  - MYOCARDIAL INFARCTION [None]
